FAERS Safety Report 5804045-6 (Version None)
Quarter: 2008Q3

REPORT INFORMATION
  Report Type: 
  Country: None (occurrence: None)
  Receive Date: 20080702
  Receipt Date: 20080422
  Transmission Date: 20090109
  Serious: Yes (Hospitalization)
  Sender: FDA-Public Use
  Company Number: OSCN-PR-0804S-0223

PATIENT
  Age: 47 Year
  Sex: Female

DRUGS (4)
  1. OMNISCAN [Suspect]
     Indication: MASS
     Dosage: 40 ML, SINGLE DOSE, I.V.
     Route: 042
     Dates: start: 20080417, end: 20080417
  2. TAGAMET [Concomitant]
  3. PREDNISONE TAB [Concomitant]
  4. ATERAX [Concomitant]

REACTIONS (1)
  - ANAPHYLACTOID REACTION [None]
